FAERS Safety Report 24550166 (Version 2)
Quarter: 2024Q4

REPORT INFORMATION
  Report Type: Spontaneous
  Country: US (occurrence: US)
  Receive Date: 20241025
  Receipt Date: 20241119
  Transmission Date: 20250115
  Serious: No
  Sender: PFIZER
  Company Number: US-PFIZER INC-202400257185

PATIENT
  Age: 75 Year
  Sex: Male
  Weight: 93.4 kg

DRUGS (6)
  1. VYNDAMAX [Suspect]
     Active Substance: TAFAMIDIS
     Indication: Cardiac amyloidosis
     Dosage: 61 MG, 1X/DAY
     Route: 048
  2. VYNDAMAX [Suspect]
     Active Substance: TAFAMIDIS
     Indication: Acquired ATTR amyloidosis
  3. VYNDAMAX [Suspect]
     Active Substance: TAFAMIDIS
     Indication: Cardiac failure chronic
  4. XANAX [Concomitant]
     Active Substance: ALPRAZOLAM
     Indication: Anxiety
     Dosage: 0.25 MG, AS NEEDED AT BED TIME
     Route: 048
     Dates: start: 20230123, end: 20240911
  5. NITROGLYCERIN [Concomitant]
     Active Substance: NITROGLYCERIN
     Indication: Chest pain
     Dosage: 0.4 MG, EVERY 5 (FIVE) MINUTES IF NEEDED, MAY REPEAT DOSE EVERY 5 MINS FOR UP TO 3 DOSES TOTAL
     Route: 060
     Dates: start: 20231122
  6. INPEFA [Concomitant]
     Active Substance: SOTAGLIFLOZIN
     Dosage: UNK

REACTIONS (1)
  - Feeling abnormal [Unknown]
